FAERS Safety Report 9226424 (Version 1)
Quarter: 2013Q2

REPORT INFORMATION
  Report Type: Spontaneous
  Country: US (occurrence: US)
  Receive Date: 20130411
  Receipt Date: 20130411
  Transmission Date: 20140414
  Serious: No
  Sender: FDA-Public Use
  Company Number: US-009507513-1303USA011019

PATIENT
  Age: 41 Year
  Sex: Female

DRUGS (3)
  1. PEGINTRON [Suspect]
     Indication: HEPATITIS C
     Dosage: 150/0.5
     Dates: start: 20130308
  2. REBETOL [Suspect]
     Route: 048
  3. TELAPREVIR [Suspect]

REACTIONS (2)
  - Rash pruritic [Unknown]
  - Swelling [Unknown]
